FAERS Safety Report 9677491 (Version 3)
Quarter: 2013Q4

REPORT INFORMATION
  Report Type: Report from Study
  Country: FR (occurrence: FR)
  Receive Date: 20131108
  Receipt Date: 20131119
  Transmission Date: 20140711
  Serious: Yes (Other)
  Sender: FDA-Public Use
  Company Number: PHHO2013FR002875

PATIENT
  Sex: 0

DRUGS (4)
  1. BLINDED NO TREATMENT RECEIVED [Suspect]
     Indication: ANGIODYSPLASIA
     Dosage: 60 MG EVERY 28 DAYS
     Route: 058
     Dates: start: 20130118, end: 20130214
  2. BLINDED PLACEBO [Suspect]
     Indication: ANGIODYSPLASIA
     Dosage: 60 MG EVERY 28 DAYS
     Route: 058
     Dates: start: 20130118, end: 20130214
  3. BLINDED SOM230 [Suspect]
     Indication: ANGIODYSPLASIA
     Dosage: 60 MG EVERY 28 DAYS
     Route: 058
     Dates: start: 20130118, end: 20130214
  4. SALICYLATES [Concomitant]

REACTIONS (1)
  - Hypoglycaemia [Recovered/Resolved]
